FAERS Safety Report 6213604-0 (Version None)
Quarter: 2009Q2

REPORT INFORMATION
  Report Type: 
  Country: None (occurrence: None)
  Receive Date: 20090603
  Receipt Date: 20090522
  Transmission Date: 20091009
  Serious: Yes (Other)
  Sender: FDA-Public Use
  Company Number: JP-PFIZER INC-2009217778

PATIENT
  Age: 74 Year

DRUGS (8)
  1. AROMASIN [Suspect]
     Indication: BREAST CANCER
     Dosage: 25 MG, 1X/DAY
     Route: 048
     Dates: start: 20090401, end: 20090501
  2. CABASER [Suspect]
     Indication: PARKINSON'S DISEASE
     Dosage: 1 MG, 1X/DAY
     Route: 048
     Dates: end: 20090501
  3. SYMMETREL [Concomitant]
     Route: 048
     Dates: end: 20090501
  4. OMEPRAZOLE [Concomitant]
     Route: 048
     Dates: end: 20090501
  5. ASPIRIN [Concomitant]
     Route: 048
     Dates: end: 20090501
  6. LOSARTAN POTASSIUM [Concomitant]
     Route: 048
     Dates: end: 20090501
  7. MADOPAR [Concomitant]
     Route: 048
     Dates: end: 20090501
  8. GASMOTIN [Concomitant]
     Route: 048
     Dates: end: 20090501

REACTIONS (1)
  - HEPATIC FUNCTION ABNORMAL [None]
